FAERS Safety Report 19732085 (Version 1)
Quarter: 2021Q3

REPORT INFORMATION
  Report Type: Other
  Country: TR (occurrence: TR)
  Receive Date: 20210820
  Receipt Date: 20210820
  Transmission Date: 20211014
  Serious: Yes (Other)
  Sender: FDA-Public Use
  Company Number: TR-B.BRAUN MEDICAL INC.-2115446

PATIENT
  Age: 5 Month
  Sex: Female

DRUGS (7)
  1. HEPARIN SODIUM IN DEXTROSE [Suspect]
     Active Substance: HEPARIN SODIUM
     Indication: CATHETER MANAGEMENT
  2. CYCLOSPORINE A [Suspect]
     Active Substance: CYCLOSPORINE
  3. AMIKACIN. [Suspect]
     Active Substance: AMIKACIN
  4. BUSULPHAN [Suspect]
     Active Substance: BUSULFAN
  5. CORTICOSTEROIDS [Suspect]
     Active Substance: CORTICOSTEROID NOS
  6. CEFEPIME [Suspect]
     Active Substance: CEFEPIME HYDROCHLORIDE
  7. CYCLOPHOSPHAMIDE. [Suspect]
     Active Substance: CYCLOPHOSPHAMIDE

REACTIONS (1)
  - Bacteraemia [None]
